FAERS Safety Report 17563690 (Version 3)
Quarter: 2023Q1

REPORT INFORMATION
  Report Type: Report from Study
  Country: BR (occurrence: BR)
  Receive Date: 20200320
  Receipt Date: 20230315
  Transmission Date: 20230418
  Serious: Yes (Hospitalization)
  Sender: FDA-Public Use
  Company Number: BR-BIOGEN-2017BI00449205

PATIENT
  Sex: Female
  Weight: 64 kg

DRUGS (8)
  1. AVONEX PEN [Suspect]
     Active Substance: INTERFERON BETA-1A
     Indication: Multiple sclerosis
     Route: 050
     Dates: start: 2014, end: 2015
  2. AVONEX PEN [Suspect]
     Active Substance: INTERFERON BETA-1A
     Route: 050
     Dates: start: 20160519, end: 201705
  3. AVONEX PEN [Suspect]
     Active Substance: INTERFERON BETA-1A
     Route: 050
     Dates: start: 2016, end: 2018
  4. AVONEX PEN [Suspect]
     Active Substance: INTERFERON BETA-1A
  5. TYLENOL [Suspect]
     Active Substance: ACETAMINOPHEN
     Indication: Dizziness
     Route: 050
  6. PREDNISONE [Suspect]
     Active Substance: PREDNISONE
     Indication: Dizziness
     Route: 050
  7. PREDNISOLONE [Suspect]
     Active Substance: PREDNISOLONE
     Indication: Dizziness
     Route: 050
  8. VITAMIN D [Concomitant]
     Active Substance: VITAMIN D NOS
     Indication: Product used for unknown indication
     Route: 050

REACTIONS (14)
  - Multiple sclerosis relapse [Recovered/Resolved]
  - Swelling [Unknown]
  - Gait disturbance [Not Recovered/Not Resolved]
  - Dysstasia [Unknown]
  - Flushing [Recovered/Resolved]
  - Mobility decreased [Recovered/Resolved]
  - Incoherent [Recovered/Resolved]
  - Asthenia [Unknown]
  - Tachycardia [Unknown]
  - Fatigue [Unknown]
  - Insomnia [Unknown]
  - Malaise [Recovered/Resolved]
  - Headache [Recovered/Resolved]
  - Dizziness [Recovered/Resolved]

NARRATIVE: CASE EVENT DATE: 20160101
